FAERS Safety Report 18546599 (Version 1)
Quarter: 2020Q4

REPORT INFORMATION
  Report Type: Spontaneous
  Country: GB (occurrence: CN)
  Receive Date: 20201125
  Receipt Date: 20201125
  Transmission Date: 20210114
  Serious: Yes (Other)
  Sender: FDA-Public Use
  Company Number: CN-EISAI MEDICAL RESEARCH-EC-2020-084045

PATIENT
  Age: 79 Year
  Sex: Female

DRUGS (4)
  1. DABIGATRAN [Interacting]
     Active Substance: DABIGATRAN
     Indication: ANTICOAGULANT THERAPY
  2. VALSARTAN. [Concomitant]
     Active Substance: VALSARTAN
     Indication: HYPERTENSION
     Dosage: DOSE AND FREQUENCY NOT PROVIDED
  3. RABEPRAZOLE [Suspect]
     Active Substance: RABEPRAZOLE
     Indication: GASTROINTESTINAL DISORDER PROPHYLAXIS
     Route: 048
  4. AMLODIPINE [Concomitant]
     Active Substance: AMLODIPINE BESYLATE
     Indication: HYPERTENSION
     Dosage: DOSE AND FREQUENCY NOT PROVIDED

REACTIONS (3)
  - Drug interaction [Recovering/Resolving]
  - Device related thrombosis [Recovering/Resolving]
  - Anticoagulation drug level decreased [Recovering/Resolving]
